FAERS Safety Report 15185988 (Version 1)
Quarter: 2018Q3

REPORT INFORMATION
  Report Type: Report from Study
  Country: US (occurrence: US)
  Receive Date: 20180723
  Receipt Date: 20180723
  Transmission Date: 20181010
  Serious: No
  Sender: FDA-Public Use
  Company Number: US-EXELIXIS-CABO-18012096

PATIENT
  Sex: Male

DRUGS (12)
  1. CABOMETYX [Suspect]
     Active Substance: CABOZANTINIB S-MALATE
     Indication: RENAL NEOPLASM
     Dosage: 40 MG, QD
     Route: 048
     Dates: start: 20171010
  2. HUMALOG [Concomitant]
     Active Substance: INSULIN LISPRO
  3. TOPROL XL [Concomitant]
     Active Substance: METOPROLOL SUCCINATE
  4. RENVELA [Concomitant]
     Active Substance: SEVELAMER CARBONATE
  5. DEMADEX [Concomitant]
     Active Substance: TORSEMIDE
  6. PROSTAT [Concomitant]
     Active Substance: HERBALS\SAW PALMETTO
  7. SENOKOT [Concomitant]
     Active Substance: SENNOSIDES
  8. TRIPLE ANTIBIOTIC [Concomitant]
  9. ZOFRAN [Concomitant]
     Active Substance: ONDANSETRON HYDROCHLORIDE
  10. KEPPRA [Concomitant]
     Active Substance: LEVETIRACETAM
  11. IPRATROPIUM [Concomitant]
     Active Substance: IPRATROPIUM
  12. ZYLOPRIM [Concomitant]
     Active Substance: ALLOPURINOL

REACTIONS (1)
  - Oral pain [Unknown]
